FAERS Safety Report 4353574-3 (Version None)
Quarter: 2004Q2

REPORT INFORMATION
  Report Type: 
  Country: None (occurrence: None)
  Receive Date: 20040505
  Receipt Date: 20040421
  Transmission Date: 20050107
  Serious: Yes (Other)
  Sender: FDA-Public Use
  Company Number: NL-GLAXOSMITHKLINE-B0330912A

PATIENT
  Age: 43 Year
  Sex: Female

DRUGS (5)
  1. BUPROPION HYDROCHLORIDE [Suspect]
     Dosage: 150MG PER DAY
     Route: 048
     Dates: start: 20040302, end: 20040319
  2. METFORMIN HCL [Concomitant]
     Dosage: 500MG PER DAY
     Route: 048
     Dates: start: 20040225
  3. DICLOFENAC SODIUM [Concomitant]
     Dosage: 150MG PER DAY
     Route: 048
     Dates: start: 20040225
  4. PARIET [Concomitant]
     Indication: GASTRIC DISORDER
     Route: 048
     Dates: start: 20040225
  5. ORGAMETRIL [Concomitant]
     Indication: CONTRACEPTION
     Dosage: 5MG PER DAY
     Route: 048

REACTIONS (5)
  - ANGIONEUROTIC OEDEMA [None]
  - EXANTHEM [None]
  - NASOPHARYNGEAL DISORDER [None]
  - PRURITUS [None]
  - URTICARIA [None]
